FAERS Safety Report 9252888 (Version 3)
Quarter: 2013Q4

REPORT INFORMATION
  Report Type: Spontaneous
  Country: DE (occurrence: DE)
  Receive Date: 20130424
  Receipt Date: 20131108
  Transmission Date: 20140711
  Serious: Yes (Life-Threatening, Hospitalization, Other)
  Sender: FDA-Public Use
  Company Number: DE-PFIZER INC-2013124925

PATIENT
  Age: 81 Year
  Sex: Female
  Weight: 63 kg

DRUGS (12)
  1. REVATIO [Suspect]
     Indication: PULMONARY ARTERIAL HYPERTENSION
     Dosage: 20 MG, 3X/DAY
     Route: 048
     Dates: start: 2005, end: 20130218
  2. REVATIO [Suspect]
     Dosage: UNK
     Dates: start: 20130401
  3. MARCUMAR [Suspect]
     Indication: ATRIAL FIBRILLATION
     Dosage: UNK
     Route: 048
     Dates: start: 2012
  4. MARCUMAR [Suspect]
     Indication: PULMONARY ARTERIAL HYPERTENSION
  5. XARELTO [Suspect]
     Indication: ARRHYTHMIA
     Dosage: 20 MG, UNK
     Route: 048
     Dates: start: 201211, end: 20130218
  6. XARELTO [Suspect]
     Indication: PULMONARY ARTERIAL HYPERTENSION
  7. XARELTO [Suspect]
     Indication: ATRIAL FIBRILLATION
  8. L-THYROXIN [Concomitant]
     Dosage: 150 UG, 1X/DAY
     Dates: start: 2012
  9. FUROSEMIN [Concomitant]
     Dosage: 20 MG, UNK
     Dates: start: 2012
  10. SPIRONOLACTONE [Concomitant]
     Dosage: 50 MG, 1X/DAY
     Dates: start: 2012
  11. PANTOPRAZOL [Concomitant]
     Dosage: 40 MG, UNK
     Dates: start: 201304
  12. ASS [Concomitant]
     Dosage: 100 MG, 1X/DAY
     Dates: start: 201304

REACTIONS (6)
  - Gastrointestinal angiodysplasia haemorrhagic [Recovered/Resolved]
  - Angiodysplasia [Recovered/Resolved]
  - Haemorrhagic anaemia [Recovered/Resolved]
  - Haematochezia [Recovered/Resolved]
  - Condition aggravated [Unknown]
  - Oedema [Unknown]
